FAERS Safety Report 10038197 (Version 1)
Quarter: 2014Q1

REPORT INFORMATION
  Report Type: Spontaneous
  Country: US (occurrence: None)
  Receive Date: 20140306
  Receipt Date: 20140306
  Transmission Date: 20141002
  Serious: Yes (Other)
  Sender: FDA-Public Use
  Company Number: 163-21880-13043835

PATIENT
  Age: 73 Year
  Sex: Male
  Weight: 85.1 kg

DRUGS (7)
  1. REVLIMID [Suspect]
     Indication: PLASMA CELL MYELOMA
     Dosage: 25 MG, 21 IN 28 D, PO
     Route: 048
     Dates: start: 201301
  2. ASPIRIN (ACETYLSALICYLIC ACID) [Concomitant]
  3. FRAGMIN (HEPARIN-FRACTION, SODIUM SALT) [Concomitant]
  4. COREG (CARVEDILOL) [Concomitant]
  5. DEXAMETHASONE (DEXAMETHASONE) [Concomitant]
  6. POTASSIUM CHLORIDE (POTASSIUM CHLORIDE) [Concomitant]
  7. LYRICA (PREGABALIN) [Concomitant]

REACTIONS (1)
  - Pulmonary embolism [None]
